FAERS Safety Report 23614161 (Version 2)
Quarter: 2024Q2

REPORT INFORMATION
  Report Type: Spontaneous
  Country: US (occurrence: US)
  Receive Date: 20240310
  Receipt Date: 20240523
  Transmission Date: 20240716
  Serious: No
  Sender: FDA-Public Use
  Company Number: US-SA-SAC20240306000641

PATIENT
  Age: 92 Year
  Sex: Male

DRUGS (1)
  1. DUPIXENT [Suspect]
     Active Substance: DUPILUMAB
     Indication: Dermatitis atopic
     Dosage: 300 MG, QOW
     Route: 058

REACTIONS (4)
  - Skin hyperpigmentation [Unknown]
  - Dry skin [Unknown]
  - Dizziness [Unknown]
  - Injection site bruising [Unknown]
